FAERS Safety Report 4617243-4 (Version None)
Quarter: 2005Q1

REPORT INFORMATION
  Report Type: 
  Country: None (occurrence: None)
  Receive Date: 20050323
  Receipt Date: 20030305
  Transmission Date: 20050727
  Serious: Yes (Hospitalization)
  Sender: FDA-Public Use
  Company Number: ES-NOVOPROD-225477

PATIENT
  Age: 70 Year
  Sex: Male
  Weight: 80 kg

DRUGS (8)
  1. NOVONORM [Suspect]
     Indication: DIABETES MELLITUS NON-INSULIN-DEPENDENT
     Dosage: 1 MG, TID
     Route: 048
     Dates: start: 20021214, end: 20021228
  2. DACORTIN [Concomitant]
     Indication: PNEUMONIA
     Dosage: 30 MG, QD
     Route: 048
     Dates: start: 20021210, end: 20021214
  3. DACORTIN [Concomitant]
     Dosage: 15 MG, QD
     Route: 048
     Dates: start: 20021214, end: 20021218
  4. DACORTIN [Concomitant]
     Dosage: 10 MG, QD
     Route: 048
     Dates: start: 20021218, end: 20021222
  5. DACORTIN [Concomitant]
     Dosage: DOSE REDUCTION UNTIL 0
     Dates: start: 20021222, end: 20021230
  6. SALIDUR [Concomitant]
     Indication: OEDEMA
     Dates: start: 20021231, end: 20030202
  7. VENTOLIN                           /00139501/ [Concomitant]
     Dosage: 2 INH / 6 HOURS
     Dates: start: 20021227
  8. ATROVENT [Concomitant]
     Dosage: 2 INH. / 6 HOURS
     Dates: start: 20021227

REACTIONS (2)
  - HEPATITIS TOXIC [None]
  - HEPATOTOXICITY [None]
